FAERS Safety Report 4545922-6 (Version None)
Quarter: 2005Q1

REPORT INFORMATION
  Report Type: 
  Country: None (occurrence: None)
  Receive Date: 20050103
  Receipt Date: 20041210
  Transmission Date: 20050727
  Serious: Yes (Hospitalization, Other)
  Sender: FDA-Public Use
  Company Number: US_0412109086

PATIENT
  Age: 50 Year
  Sex: Female
  Weight: 80 kg

DRUGS (10)
  1. ZYPREXA [Suspect]
     Indication: SCHIZOPHRENIA
     Dosage: 20 MG DAY
     Dates: start: 20011005, end: 20040825
  2. LOSARTAN [Concomitant]
  3. DOCUSATE SODIUM [Concomitant]
  4. FERROUS SULFATE TAB [Concomitant]
  5. TRAZADONE (TRAZODONE) [Concomitant]
  6. CHLORPROMAZINE [Concomitant]
  7. VENLAFAXINE HCL [Concomitant]
  8. MIRTAZAPINE [Concomitant]
  9. CLOZAPINE [Concomitant]
  10. ABILIFY [Concomitant]

REACTIONS (5)
  - CONDITION AGGRAVATED [None]
  - INJURY [None]
  - PLATELET COUNT INCREASED [None]
  - SCHIZOPHRENIA [None]
  - TREATMENT NONCOMPLIANCE [None]
